FAERS Safety Report 9051349 (Version 4)
Quarter: 2014Q2

REPORT INFORMATION
  Report Type: Report from Study
  Country: JP (occurrence: JP)
  Receive Date: 20130206
  Receipt Date: 20140522
  Transmission Date: 20141212
  Serious: Yes (Other)
  Sender: FDA-Public Use
  Company Number: JP-VERTEX PHARMACEUTICALS INC.-2013-001545

PATIENT
  Age: 34 Year
  Sex: Male

DRUGS (13)
  1. VX-950 (TELAPREVIR) [Suspect]
     Indication: HEPATITIS C
     Dosage: 2250 MG, QD
     Route: 048
     Dates: start: 20120428, end: 20120719
  2. RIBAVIRIN [Suspect]
     Indication: HEPATITIS C
     Dosage: 800 MG, QD
     Route: 048
     Dates: start: 20120428
  3. PEGINTERFERON ALFA-2B [Suspect]
     Indication: HEPATITIS C
     Dosage: 1.5 ?G/KG, QW
     Route: 058
     Dates: start: 20120428
  4. PEGINTERFERON ALFA-2B [Suspect]
     Dosage: 1.43 ?G/KG, QW
     Route: 058
     Dates: end: 20120811
  5. PEGINTERFERON ALFA-2B [Suspect]
     Dosage: 1.14 ?G/KG, QW
     Route: 058
     Dates: start: 20120818, end: 20120831
  6. PEGINTERFERON ALFA-2B [Suspect]
     Dosage: 1.43 ?G/KG, QW
     Route: 058
     Dates: start: 20120907, end: 20120914
  7. PEGINTERFERON ALFA-2B [Suspect]
     Dosage: 1.14 ?G/KG, QW
     Route: 058
     Dates: start: 20120921, end: 20120928
  8. PEGINTERFERON ALFA-2B [Suspect]
     Dosage: 1.43 ?G/KG, QW
     Route: 058
     Dates: start: 20121005
  9. FEBURIC [Concomitant]
     Dosage: 10 MG, QD
     Route: 048
     Dates: end: 20120628
  10. FEBURIC [Concomitant]
     Dosage: 20 MG, QD
     Route: 048
     Dates: start: 20120629
  11. LOXONIN [Concomitant]
     Dosage: 180 MG,QD
     Route: 048
     Dates: start: 20120512, end: 20120907
  12. MUCOSTA [Concomitant]
     Dosage: 300 MG,QD
     Route: 048
     Dates: start: 20120512, end: 20120907
  13. TAKEPRON [Concomitant]
     Dosage: 15 MG, QD
     Route: 048
     Dates: start: 20120519, end: 20120526

REACTIONS (1)
  - White blood cell count decreased [Recovered/Resolved]
